FAERS Safety Report 8344671-6 (Version None)
Quarter: 2012Q2

REPORT INFORMATION
  Report Type: 
  Country: None (occurrence: None)
  Receive Date: 20120508
  Receipt Date: 20120501
  Transmission Date: 20120825
  Serious: Yes (Other)
  Sender: FDA-Public Use
  Company Number: US-JNJFOC-20120504187

PATIENT
  Age: 83 Year
  Sex: Male
  Weight: 79.38 kg

DRUGS (4)
  1. ZYRTEC-D 12 HOUR [Suspect]
     Indication: MULTIPLE ALLERGIES
     Route: 048
     Dates: start: 20120429, end: 20120429
  2. ZYRTEC-D 12 HOUR [Suspect]
     Indication: SEASONAL ALLERGY
     Route: 048
     Dates: start: 20120429, end: 20120429
  3. AZILECT [Concomitant]
     Indication: PARKINSON'S DISEASE
     Route: 065
     Dates: start: 20080101
  4. SINEMET [Concomitant]
     Indication: PARKINSON'S DISEASE
     Route: 065

REACTIONS (2)
  - BLOOD PRESSURE INCREASED [None]
  - WRONG DRUG ADMINISTERED [None]
